FAERS Safety Report 7883203-3 (Version None)
Quarter: 2011Q4

REPORT INFORMATION
  Report Type: 
  Country: None (occurrence: None)
  Receive Date: 20111101
  Receipt Date: 20111101
  Transmission Date: 20120403
  Serious: Yes (Hospitalization)
  Sender: FDA-Public Use
  Company Number: None

PATIENT
  Age: 77 Year
  Sex: Male
  Weight: 73.2 kg

DRUGS (1)
  1. SODIUM FERRIC GLUCONATE [Suspect]
     Indication: ANAEMIA
     Dosage: 250 MG ONCE IV
     Route: 042
     Dates: start: 20111026, end: 20111026

REACTIONS (4)
  - ABDOMINAL PAIN [None]
  - PUPIL FIXED [None]
  - LOSS OF CONSCIOUSNESS [None]
  - HYPOTENSION [None]
